FAERS Safety Report 5327841-0 (Version None)
Quarter: 2007Q2

REPORT INFORMATION
  Report Type: 
  Country: None (occurrence: None)
  Receive Date: 20070223
  Receipt Date: 20060126
  Transmission Date: 20071010
  Serious: Yes (Other)
  Sender: FDA-Public Use
  Company Number: WAES 0601USA03172

PATIENT
  Sex: Female

DRUGS (1)
  1. ZOCOR [Suspect]
     Indication: BLOOD CHOLESTEROL INCREASED
     Dosage: 20 MG/PO
     Route: 048
     Dates: start: 20050831, end: 20051201

REACTIONS (2)
  - ASPARTATE AMINOTRANSFERASE INCREASED [None]
  - FATIGUE [None]
